FAERS Safety Report 11432032 (Version 1)
Quarter: 2015Q3

REPORT INFORMATION
  Report Type: Spontaneous
  Country: US (occurrence: US)
  Receive Date: 20150828
  Receipt Date: 20150828
  Transmission Date: 20151125
  Serious: No
  Sender: FDA-Public Use
  Company Number: US-PFIZER INC-2015282290

PATIENT
  Sex: Male

DRUGS (2)
  1. ERYTHROMYCIN. [Concomitant]
     Active Substance: ERYTHROMYCIN
     Indication: ROSACEA
     Dosage: UNK
     Route: 061
     Dates: start: 2000
  2. CLINDAMYCIN PHOSPHATE. [Suspect]
     Active Substance: CLINDAMYCIN PHOSPHATE
     Indication: ROSACEA
     Dosage: SOMETIMES
     Route: 061

REACTIONS (3)
  - Drug ineffective [Not Recovered/Not Resolved]
  - Expired product administered [Not Recovered/Not Resolved]
  - Product quality issue [Not Recovered/Not Resolved]
